FAERS Safety Report 8625556-4 (Version None)
Quarter: 2012Q3

REPORT INFORMATION
  Report Type: 
  Country: None (occurrence: None)
  Receive Date: 20120827
  Receipt Date: 20111010
  Transmission Date: 20120928
  Serious: Yes (Death)
  Sender: FDA-Public Use
  Company Number: US-ROCHE-1103445

PATIENT
  Sex: Male

DRUGS (3)
  1. AVASTIN [Suspect]
  2. TARCEVA [Suspect]
     Indication: PRODUCT USED FOR UNKNOWN INDICATION
  3. AVASTIN [Suspect]
     Indication: BRAIN NEOPLASM MALIGNANT

REACTIONS (1)
  - BRAIN NEOPLASM [None]
